FAERS Safety Report 14993047 (Version 1)
Quarter: 2018Q2

REPORT INFORMATION
  Report Type: Other
  Country: GB (occurrence: GB)
  Receive Date: 20180610
  Receipt Date: 20180610
  Transmission Date: 20180711
  Serious: Yes (Death, Other)
  Sender: FDA-Public Use
  Company Number: GB-DEXPHARM-20180380

PATIENT

DRUGS (1)
  1. CHLORHEXIDINE GLUCONATE 0.5% IN 70% METHANOL [Suspect]
     Active Substance: CHLORHEXIDINE\METHYL ALCOHOL

REACTIONS (6)
  - Hypernatraemia [Unknown]
  - Renal failure [Fatal]
  - Skin disorder [Recovered/Resolved]
  - Fungal sepsis [Unknown]
  - Hypothermia [Unknown]
  - Chemical burn of skin [Recovered/Resolved]
